FAERS Safety Report 4302735-8 (Version None)
Quarter: 2004Q1

REPORT INFORMATION
  Report Type: 
  Country: None (occurrence: None)
  Receive Date: 20040224
  Receipt Date: 20020722
  Transmission Date: 20041129
  Serious: Yes (Hospitalization, Disabling, Other)
  Sender: FDA-Public Use
  Company Number: PHEH2002US06620

PATIENT
  Age: 51 Year
  Sex: Female
  Weight: 57 kg

DRUGS (7)
  1. FEMARA [Concomitant]
  2. ARIMIDEX [Concomitant]
     Dates: start: 19980101, end: 20011001
  3. ZOLOFT [Concomitant]
  4. AREDIA [Suspect]
     Indication: METASTASES TO BONE
     Dosage: 90 MG, QMO
     Route: 042
     Dates: start: 19981010, end: 20020403
  5. FEMARA [Concomitant]
  6. VOLTAREN [Concomitant]
  7. DYAZIDE [Concomitant]

REACTIONS (11)
  - ABDOMINAL ADHESIONS [None]
  - ANAEMIA [None]
  - DIALYSIS [None]
  - GLOMERULONEPHRITIS FOCAL [None]
  - HAEMODIALYSIS [None]
  - MIGRAINE [None]
  - POST PROCEDURAL PAIN [None]
  - RENAL FAILURE ACUTE [None]
  - RENAL GLYCOSURIA [None]
  - SUBCUTANEOUS EMPHYSEMA [None]
  - UMBILICAL HERNIA [None]
